FAERS Safety Report 12995870 (Version 1)
Quarter: 2016Q4

REPORT INFORMATION
  Report Type: Spontaneous
  Country: US (occurrence: US)
  Receive Date: 20161202
  Receipt Date: 20161202
  Transmission Date: 20170207
  Serious: No
  Sender: FDA-Public Use
  Company Number: US-GLAXOSMITHKLINE-US2016178870

PATIENT
  Sex: Female

DRUGS (9)
  1. HYDROXYCHLOROQUINE [Concomitant]
     Active Substance: HYDROXYCHLOROQUINE
  2. LATANOPROST EYE DROPS [Concomitant]
     Active Substance: LATANOPROST
  3. SIMBRINZA EYE DROPS (BRIMONIDINE + BRINZOLAMIDE) [Concomitant]
  4. SULINDAC. [Concomitant]
     Active Substance: SULINDAC
  5. ANORO ELLIPTA [Suspect]
     Active Substance: UMECLIDINIUM BROMIDE\VILANTEROL TRIFENATATE
     Indication: PRODUCT USED FOR UNKNOWN INDICATION
     Dosage: UNK
     Route: 055
     Dates: start: 2016
  6. AMLODIPINE [Concomitant]
     Active Substance: AMLODIPINE BESYLATE
  7. VITAMIN B12 [Concomitant]
     Active Substance: CYANOCOBALAMIN
  8. METHOTREXATE. [Concomitant]
     Active Substance: METHOTREXATE
  9. VITAMIN E [Concomitant]
     Active Substance: .ALPHA.-TOCOPHEROL

REACTIONS (4)
  - Intentional product misuse [Unknown]
  - Underdose [Unknown]
  - Ill-defined disorder [Unknown]
  - Drug dose omission [Unknown]
